FAERS Safety Report 11377704 (Version 1)
Quarter: 2015Q3

REPORT INFORMATION
  Report Type: Spontaneous
  Country: US (occurrence: US)
  Receive Date: 20150811
  Receipt Date: 20150811
  Transmission Date: 20151125
  Serious: No
  Sender: FDA-Public Use
  Company Number: US-ELI_LILLY_AND_COMPANY-US200905000374

PATIENT
  Age: 75 Year
  Sex: Female

DRUGS (13)
  1. HUMULIN R [Suspect]
     Active Substance: INSULIN HUMAN
     Dosage: 4 U, AS NEEDED
  2. COZAAR [Concomitant]
     Active Substance: LOSARTAN POTASSIUM
     Indication: HYPERTENSION
  3. HYDRALAZINE [Concomitant]
     Active Substance: HYDRALAZINE HYDROCHLORIDE
     Indication: HYPERTENSION
  4. MOBIC [Concomitant]
     Active Substance: MELOXICAM
  5. LYRICA [Concomitant]
     Active Substance: PREGABALIN
     Indication: NEURALGIA
  6. HUMULIN R [Suspect]
     Active Substance: INSULIN HUMAN
     Indication: TYPE 2 DIABETES MELLITUS
     Dosage: UNK, UNK
     Dates: start: 1999
  7. HUMULIN R [Suspect]
     Active Substance: INSULIN HUMAN
     Dosage: 6 U, AS NEEDED
  8. LANTUS [Concomitant]
     Active Substance: INSULIN GLARGINE
     Indication: TYPE 2 DIABETES MELLITUS
  9. PROCARDIA [Concomitant]
     Active Substance: NIFEDIPINE
     Indication: HYPERTENSION
  10. BUMETANIDE. [Concomitant]
     Active Substance: BUMETANIDE
     Indication: FLUID RETENTION
     Dates: start: 200904
  11. LIPITOR [Concomitant]
     Active Substance: ATORVASTATIN CALCIUM
  12. KLOR-CON [Concomitant]
     Active Substance: POTASSIUM CHLORIDE
  13. ZAROXOLYN [Concomitant]
     Active Substance: METOLAZONE

REACTIONS (4)
  - Blood glucose increased [Recovered/Resolved]
  - Oedema peripheral [Recovered/Resolved]
  - Gait disturbance [Recovered/Resolved]
  - Neuralgia [Unknown]

NARRATIVE: CASE EVENT DATE: 200904
